FAERS Safety Report 25952160 (Version 1)
Quarter: 2025Q4

REPORT INFORMATION
  Report Type: Spontaneous
  Country: GB (occurrence: GB)
  Receive Date: 20251023
  Receipt Date: 20251023
  Transmission Date: 20260118
  Serious: Yes (Hospitalization)
  Sender: B. BRAUN MEDICAL INC.
  Company Number: None

PATIENT
  Age: 52 Year
  Sex: Female

DRUGS (5)
  1. ACETAMINOPHEN [Suspect]
     Active Substance: ACETAMINOPHEN
     Dosage: 1000MG IN 100ML SOLUTION FOR INFUSION
  2. FOLIC ACID [Concomitant]
     Active Substance: FOLIC ACID
     Dosage: FOLIC ACID 5MG TABLETS, ONE TO BE TAKEN EACH DAY FOR 4 MONTHS
  3. UTROGESTAN [Concomitant]
     Active Substance: PROGESTERONE
     Dosage: 100MG CAPSULES (BESINS HEALTHCARE (UK) LTD), ONE TO BE TAKEN EACH NIGHT (HRT
  4. Oestrogel Pump-Pack 0.06% gel [Concomitant]
     Dosage: APPLY 2 PUMPS OF GEL TO CLEAN, DRY, INTACT SKIN SUCH AS ARMS, SHOULDERS OR INNER THIGHS AND ALLOW TO DRY FOR 5 MINUTES BEFORE COVERING WITH CLOTHING. NOT TO BE APPLIED ON OR NEAR BREASTS OR ON VULVAL REGION
  5. PROGESTERONE [Concomitant]
     Active Substance: PROGESTERONE

REACTIONS (2)
  - Dyspnoea [Unknown]
  - Throat irritation [Recovered/Resolved]
